FAERS Safety Report 17780480 (Version 2)
Quarter: 2020Q2

REPORT INFORMATION
  Report Type: Report from Study
  Country: CO (occurrence: CO)
  Receive Date: 20200514
  Receipt Date: 20200622
  Transmission Date: 20200714
  Serious: Yes (Life-Threatening, Hospitalization, Other)
  Sender: FDA-Public Use
  Company Number: CO-BRISTOL-MYERS SQUIBB COMPANY-BMS-2019-022845

PATIENT
  Age: 63 Year
  Sex: Female
  Weight: 71 kg

DRUGS (2)
  1. NIVOLUMAB [Suspect]
     Active Substance: NIVOLUMAB
     Indication: PRODUCT USED FOR UNKNOWN INDICATION
     Dosage: 424 MILLIGRAM, QMO
     Route: 042
     Dates: start: 20200601
  2. NIVOLUMAB [Suspect]
     Active Substance: NIVOLUMAB
     Indication: MALIGNANT MELANOMA
     Dosage: 226 MG, Q2WK
     Route: 042
     Dates: start: 20181109

REACTIONS (9)
  - Facial paralysis [Recovering/Resolving]
  - Pneumonia [Recovering/Resolving]
  - Urinary incontinence [Recovering/Resolving]
  - Prescribed underdose [Recovered/Resolved]
  - Off label use [Recovered/Resolved]
  - Dyspnoea [Recovering/Resolving]
  - Renal mass [Recovering/Resolving]
  - Asthenia [Recovering/Resolving]
  - Hip fracture [Recovering/Resolving]

NARRATIVE: CASE EVENT DATE: 20190226
